FAERS Safety Report 5555587-2 (Version None)
Quarter: 2007Q4

REPORT INFORMATION
  Report Type: 
  Country: None (occurrence: None)
  Receive Date: 20071213
  Receipt Date: 20070824
  Transmission Date: 20080405
  Serious: No
  Sender: FDA-Public Use
  Company Number: US-AMGEN-KDL237374

PATIENT
  Sex: Female

DRUGS (4)
  1. ENBREL [Suspect]
     Indication: PSORIATIC ARTHROPATHY
     Route: 058
     Dates: start: 20030501
  2. ENBREL [Suspect]
     Indication: PSORIASIS
  3. PROTONIX [Concomitant]
  4. LODINE [Concomitant]

REACTIONS (8)
  - INJECTION SITE ERYTHEMA [None]
  - INJECTION SITE PRURITUS [None]
  - INJECTION SITE SWELLING [None]
  - INJECTION SITE WARMTH [None]
  - NASOPHARYNGITIS [None]
  - PRODUCTIVE COUGH [None]
  - PSORIASIS [None]
  - RESPIRATORY TRACT CONGESTION [None]
